FAERS Safety Report 4932150-5 (Version None)
Quarter: 2006Q1

REPORT INFORMATION
  Report Type: 
  Country: None (occurrence: None)
  Receive Date: 20060303
  Receipt Date: 20051201
  Transmission Date: 20060701
  Serious: Yes (Death, Hospitalization, Other)
  Sender: FDA-Public Use
  Company Number: PHEH2005US13073

PATIENT
  Age: 53 Year
  Sex: Male

DRUGS (18)
  1. ZOMETA [Suspect]
     Indication: METASTASES TO BONE
     Dosage: 4 MG EVERY 28 DAYS
     Dates: start: 20040201, end: 20050401
  2. DEXAMETHASONE SODIUM PHOSPHATE [Concomitant]
     Dosage: 40MG QD FOR 4 DAYS
  3. THALOMID [Concomitant]
     Dosage: 200MG QD
     Dates: start: 20040201, end: 20050701
  4. LEXAPRO [Concomitant]
     Dosage: 20MG QD
  5. NORVASC [Concomitant]
     Dosage: 5MG QD
  6. ACTOS [Concomitant]
     Dosage: 15MG QD
  7. PRILOSEC [Concomitant]
     Dosage: 20MG QD
  8. BACTRIM DS [Concomitant]
     Dosage: QD MON, FRIDAY
  9. DULCOLAX [Concomitant]
     Dosage: 10MG QD
  10. PERIOGARD [Concomitant]
     Dosage: TID
  11. CATAPRES /USA/ [Concomitant]
     Dosage: 1 PATCH Q WEEK
  12. REMERON [Concomitant]
     Dosage: 15MG QHS
  13. MIRALAX [Concomitant]
     Dosage: 1 CAPFUL QD
  14. CERTAGEN [Concomitant]
     Dosage: QD
  15. METAMUCIL [Concomitant]
     Dosage: 1PACKET QD
  16. HUMALOG [Concomitant]
  17. VELCADE [Concomitant]
     Dates: start: 20050801, end: 20050901
  18. DECADRON #1 [Concomitant]
     Indication: PROPHYLAXIS
     Dates: start: 20040201, end: 20050401

REACTIONS (22)
  - BONE DISORDER [None]
  - BONE LESION [None]
  - BONE PAIN [None]
  - CELLULITIS [None]
  - CEREBRAL HAEMORRHAGE [None]
  - ERYTHEMA [None]
  - GINGIVAL BLEEDING [None]
  - GINGIVAL INFECTION [None]
  - HYPERCALCAEMIA [None]
  - MALIGNANT NEOPLASM PROGRESSION [None]
  - OSTEOMYELITIS CHRONIC [None]
  - OSTEONECROSIS [None]
  - PAIN [None]
  - PATHOLOGICAL FRACTURE [None]
  - PERIODONTITIS [None]
  - POSTOPERATIVE INFECTION [None]
  - PRIMARY SEQUESTRUM [None]
  - RADIOTHERAPY [None]
  - SPINAL CORD COMPRESSION [None]
  - SWELLING [None]
  - TOOTH ABSCESS [None]
  - TOOTH EXTRACTION [None]
